FAERS Safety Report 6494699-6 (Version None)
Quarter: 2009Q4

REPORT INFORMATION
  Report Type: 
  Country: None (occurrence: None)
  Receive Date: 20091214
  Receipt Date: 20090317
  Transmission Date: 20100525
  Serious: Yes (Hospitalization)
  Sender: FDA-Public Use
  Company Number: US-BRISTOL-MYERS SQUIBB COMPANY-14546626

PATIENT
  Age: 15 Year
  Sex: Female
  Weight: 57 kg

DRUGS (3)
  1. ABILIFY [Suspect]
     Indication: AFFECTIVE DISORDER
     Dosage: DOSE INCRESED TO 10 MG AND DECREASED TO 5 MG
  2. ABILIFY [Suspect]
     Indication: BIPOLAR DISORDER
     Dosage: DOSE INCRESED TO 10 MG AND DECREASED TO 5 MG
  3. LAMICTAL [Concomitant]

REACTIONS (3)
  - INSOMNIA [None]
  - RESTLESSNESS [None]
  - SUICIDAL IDEATION [None]
